FAERS Safety Report 7741931-4 (Version None)
Quarter: 2011Q3

REPORT INFORMATION
  Report Type: 
  Country: None (occurrence: None)
  Receive Date: 20110912
  Receipt Date: 20110831
  Transmission Date: 20111222
  Serious: Yes (Other)
  Sender: FDA-Public Use
  Company Number: FR-JNJFOC-20110901262

PATIENT
  Sex: Female

DRUGS (5)
  1. XANAX [Suspect]
     Indication: DEPRESSION
     Route: 048
     Dates: start: 20101123, end: 20101126
  2. DURAGESIC-100 [Suspect]
     Indication: PROCEDURAL PAIN
     Route: 062
     Dates: start: 20101123, end: 20101126
  3. MORPHINE SULFATE [Suspect]
     Indication: PROCEDURAL PAIN
     Route: 048
     Dates: start: 20101123, end: 20101126
  4. MORPHINE SULFATE [Suspect]
     Indication: PROCEDURAL PAIN
     Route: 048
     Dates: start: 20101123, end: 20101126
  5. ESCITALOPRAM OXALATE [Suspect]
     Indication: DEPRESSION
     Route: 048
     Dates: start: 20101123, end: 20101126

REACTIONS (3)
  - MIOSIS [None]
  - OVERDOSE [None]
  - SOMNOLENCE [None]
